FAERS Safety Report 25524504 (Version 1)
Quarter: 2025Q3

REPORT INFORMATION
  Report Type: Spontaneous
  Country: US (occurrence: None)
  Receive Date: 20250704
  Receipt Date: 20250704
  Transmission Date: 20251020
  Serious: Yes (Other)
  Sender: FDA-CTU
  Company Number: None

PATIENT
  Age: 67 Year
  Sex: Female
  Weight: 63.9 kg

DRUGS (6)
  1. CAPZIX [Suspect]
     Active Substance: CAPSAICIN
     Indication: Neuralgia
     Route: 061
  2. Amlodipine Besylate 7.5mg [Concomitant]
  3. VITAMINS [Concomitant]
     Active Substance: VITAMINS
  4. VITAMIN B COMPLEX [Concomitant]
     Active Substance: CYANOCOBALAMIN\DEXPANTHENOL\NIACINAMIDE\PYRIDOXINE HYDROCHLORIDE\RIBOFLAVIN 5^-PHOSPHATE SODIUM\THIA
  5. MAGNESIUM [Concomitant]
     Active Substance: MAGNESIUM
  6. Amino Acid Supplement [Concomitant]

REACTIONS (4)
  - Application site pain [None]
  - Application site pain [None]
  - Application site erythema [None]
  - Application site swelling [None]

NARRATIVE: CASE EVENT DATE: 20250702
